FAERS Safety Report 23218142 (Version 2)
Quarter: 2023Q4

REPORT INFORMATION
  Report Type: Report from Study
  Country: ZA (occurrence: ZA)
  Receive Date: 20231122
  Receipt Date: 20231204
  Transmission Date: 20240110
  Serious: Yes (Death)
  Sender: FDA-Public Use
  Company Number: DE-BAYER-2023A166218

PATIENT
  Sex: Male

DRUGS (1)
  1. EYLEA [Suspect]
     Active Substance: AFLIBERCEPT
     Indication: Neovascular age-related macular degeneration
     Dosage: 1 X VIAL FOR RIGHT EYE ONLY, SOLUTION FOR INJECTION, 40MG/ML
     Dates: start: 20220826, end: 20231114

REACTIONS (1)
  - Death [Fatal]
